FAERS Safety Report 13610441 (Version 4)
Quarter: 2017Q3

REPORT INFORMATION
  Report Type: Spontaneous
  Country: PT (occurrence: PT)
  Receive Date: 20170605
  Receipt Date: 20170705
  Transmission Date: 20171127
  Serious: Yes (Other)
  Sender: FDA-Public Use
  Company Number: PT-GLAXOSMITHKLINE-PT2017GSK082599

PATIENT
  Age: 68 Year
  Sex: Male

DRUGS (2)
  1. COMBODART [Suspect]
     Active Substance: DUTASTERIDE\TAMSULOSIN
     Indication: BENIGN PROSTATIC HYPERPLASIA
     Dosage: UNK
     Route: 048
     Dates: start: 20170210, end: 20170526
  2. SIMVASTATIN. [Concomitant]
     Active Substance: SIMVASTATIN
     Indication: PRODUCT USED FOR UNKNOWN INDICATION
     Dosage: UNK
     Dates: start: 201703, end: 20170526

REACTIONS (9)
  - Cerebrovascular accident [Unknown]
  - Dizziness [Recovering/Resolving]
  - Lacrimal sac cellulitis [Recovering/Resolving]
  - Vision blurred [Recovering/Resolving]
  - Skin exfoliation [Recovering/Resolving]
  - Hypersensitivity [Recovering/Resolving]
  - Eye disorder [Recovering/Resolving]
  - Blood pressure fluctuation [Recovering/Resolving]
  - Eyelid oedema [Recovering/Resolving]

NARRATIVE: CASE EVENT DATE: 20170220
